FAERS Safety Report 16767622 (Version 2)
Quarter: 2019Q3

REPORT INFORMATION
  Report Type: Report from Study
  Country: IT (occurrence: IT)
  Receive Date: 20190903
  Receipt Date: 20190913
  Transmission Date: 20191005
  Serious: Yes (Death)
  Sender: FDA-Public Use
  Company Number: IT-MYLANLABS-2019M1081740

PATIENT
  Age: 64 Year
  Sex: Female

DRUGS (1)
  1. EVEROLIMUS. [Suspect]
     Active Substance: EVEROLIMUS
     Indication: BREAST CANCER FEMALE
     Dosage: 5 MG, QD
     Route: 065
     Dates: start: 20160718, end: 20170126

REACTIONS (5)
  - Malignant neoplasm progression [Fatal]
  - Disease progression [Fatal]
  - Fatigue [Recovered/Resolved]
  - Dysgeusia [Recovered/Resolved]
  - Breast cancer [Fatal]

NARRATIVE: CASE EVENT DATE: 20161116
